FAERS Safety Report 16667102 (Version 4)
Quarter: 2019Q3

REPORT INFORMATION
  Report Type: Spontaneous
  Country: GB (occurrence: GB)
  Receive Date: 20190805
  Receipt Date: 20190823
  Transmission Date: 20191004
  Serious: Yes (Other)
  Sender: FDA-Public Use
  Company Number: GB-AUROBINDO-AUR-APL-2019-043019

PATIENT

DRUGS (11)
  1. ARIPIPRAZOLE. [Interacting]
     Active Substance: ARIPIPRAZOLE
     Dosage: 15 MILLIGRAM, ONCE A DAY
     Route: 048
  2. ARIPIPRAZOLE TABLETS [Suspect]
     Active Substance: ARIPIPRAZOLE
     Indication: PSYCHOTIC DISORDER
     Dosage: 15 MILLIGRAM, ONCE A DAY (OVER 8 MONTHS)
     Route: 048
  3. OXCARBAZEPINE. [Interacting]
     Active Substance: OXCARBAZEPINE
     Indication: ENZYME INDUCTION
     Dosage: UNK
     Route: 048
  4. RISPERIDONE. [Concomitant]
     Active Substance: RISPERIDONE
     Indication: PSYCHOTIC DISORDER
     Dosage: 1000 MICROGRAM, DAILY (500 ?G, BID)
     Route: 048
  5. OXCARBAZEPINE. [Interacting]
     Active Substance: OXCARBAZEPINE
     Indication: EPILEPSY
  6. LORAZEPAM. [Suspect]
     Active Substance: LORAZEPAM
     Indication: CATATONIA
     Dosage: UNK (LOW-DOSE 0.5-1 MG)
     Route: 065
  7. RISPERIDONE. [Concomitant]
     Active Substance: RISPERIDONE
     Dosage: UNK, GRADUALLY INCREASED OVER A PERIOD OF 5 MONTHS
     Route: 065
  8. ARIPIPRAZOLE TABLETS [Suspect]
     Active Substance: ARIPIPRAZOLE
     Indication: PSYCHOTIC SYMPTOM
     Dosage: 5 MILLIGRAM
     Route: 048
  9. ARIPIPRAZOLE. [Interacting]
     Active Substance: ARIPIPRAZOLE
     Indication: PSYCHOTIC DISORDER
     Dosage: 5 MILLIGRAM, ONCE A DAY
     Route: 048
  10. ARIPIPRAZOLE. [Suspect]
     Active Substance: ARIPIPRAZOLE
     Indication: PSYCHOTIC SYMPTOM
     Dosage: 200-400MG MONTHLY
     Route: 030
  11. CARBAMAZEPINE. [Suspect]
     Active Substance: CARBAMAZEPINE
     Indication: EPILEPSY
     Dosage: 1000 MILLIGRAM, DAILY (500 MG, BID)
     Route: 065

REACTIONS (8)
  - Enzyme level decreased [Unknown]
  - Antipsychotic drug level decreased [Unknown]
  - Contraindicated product administered [Unknown]
  - Drug level decreased [Unknown]
  - Petit mal epilepsy [Unknown]
  - Product use issue [Unknown]
  - Drug interaction [Unknown]
  - Product use in unapproved indication [Unknown]
